FAERS Safety Report 7451404-4 (Version None)
Quarter: 2011Q2

REPORT INFORMATION
  Report Type: 
  Country: None (occurrence: None)
  Receive Date: 20110502
  Receipt Date: 20110427
  Transmission Date: 20111010
  Serious: Yes (Hospitalization)
  Sender: FDA-Public Use
  Company Number: SE-PFIZER INC-2011092238

PATIENT
  Age: 87 Year
  Sex: Female

DRUGS (4)
  1. SPIRONOLACTONE [Suspect]
     Indication: HYPERTENSION
     Dosage: UNK
     Route: 048
     Dates: end: 20110119
  2. TRIATEC [Suspect]
     Indication: HYPERTENSION
     Dosage: UNK
     Route: 048
     Dates: end: 20110119
  3. SELOKEN ZOC [Suspect]
     Dosage: UNK
     Route: 048
     Dates: end: 20110119
  4. FURIX [Suspect]
     Indication: HYPERTENSION
     Route: 048

REACTIONS (1)
  - ORTHOSTATIC HYPOTENSION [None]
